FAERS Safety Report 7936748-1 (Version None)
Quarter: 2011Q4

REPORT INFORMATION
  Report Type: 
  Country: None (occurrence: None)
  Receive Date: 20111123
  Receipt Date: 20111114
  Transmission Date: 20120403
  Serious: Yes (Hospitalization)
  Sender: FDA-Public Use
  Company Number: FR-ROCHE-1013219

PATIENT
  Age: 53 Year
  Sex: Female

DRUGS (4)
  1. FLUOROURACIL [Concomitant]
     Indication: COLON CANCER
     Route: 065
  2. LEUCOVORIN CALCIUM [Concomitant]
     Indication: COLON CANCER
     Route: 065
  3. IRINOTECAN HCL [Concomitant]
     Indication: COLON CANCER
     Route: 065
  4. AVASTIN [Suspect]
     Indication: COLON CANCER
     Route: 042
     Dates: start: 20090310, end: 20090414

REACTIONS (1)
  - ENCEPHALOPATHY [None]
